FAERS Safety Report 14338724 (Version 2)
Quarter: 2018Q1

REPORT INFORMATION
  Report Type: Spontaneous
  Country: MA (occurrence: MA)
  Receive Date: 20171229
  Receipt Date: 20180105
  Transmission Date: 20180509
  Serious: Yes (Other)
  Sender: FDA-Public Use
  Company Number: MA-ALLERGAN-1773527US

PATIENT
  Age: 70 Year
  Sex: Female

DRUGS (1)
  1. ZYMAXID [Suspect]
     Active Substance: GATIFLOXACIN
     Indication: PRODUCT USED FOR UNKNOWN INDICATION
     Dosage: UNK
     Route: 047

REACTIONS (2)
  - Panophthalmitis [Unknown]
  - Ulcerative keratitis [Unknown]
